FAERS Safety Report 9422187 (Version 1)
Quarter: 2013Q3

REPORT INFORMATION
  Report Type: Spontaneous
  Country: US (occurrence: None)
  Receive Date: 20130725
  Receipt Date: 20130725
  Transmission Date: 20140515
  Serious: Yes (Hospitalization)
  Sender: FDA-Public Use
  Company Number: None

PATIENT
  Age: 64 Year
  Sex: Male
  Weight: 91.17 kg

DRUGS (2)
  1. ELTROMBOPAG [Suspect]
     Indication: IMMUNE THROMBOCYTOPENIC PURPURA
     Route: 048
     Dates: start: 20110824, end: 20130716
  2. PREDNISONE [Concomitant]

REACTIONS (4)
  - Portal vein thrombosis [None]
  - Renal vein thrombosis [None]
  - Deep vein thrombosis [None]
  - Gastrointestinal disorder [None]
